FAERS Safety Report 9835470 (Version 1)
Quarter: 2014Q1

REPORT INFORMATION
  Report Type: Spontaneous
  Country: US (occurrence: US)
  Receive Date: 20140122
  Receipt Date: 20140122
  Transmission Date: 20141002
  Serious: No
  Sender: FDA-Public Use
  Company Number: US-BRISTOL-MYERS SQUIBB COMPANY-19645928

PATIENT
  Age: 81 Year
  Sex: Female
  Weight: 86.62 kg

DRUGS (14)
  1. ELIQUIS [Suspect]
     Indication: CEREBROVASCULAR ACCIDENT
  2. ELIQUIS [Suspect]
     Indication: ATRIAL FIBRILLATION
  3. SOTALOL [Concomitant]
  4. SYNTHROID [Concomitant]
  5. BENICAR [Concomitant]
  6. ASPIRIN [Concomitant]
  7. INSULIN [Concomitant]
  8. VITAMIN C [Concomitant]
  9. FISH OIL [Concomitant]
  10. MAGNESIUM CITRATE [Concomitant]
  11. VITAMIN D [Concomitant]
  12. COQ10 [Concomitant]
  13. ALPHA LIPONACID [Concomitant]
  14. MAGNESIUM OXIDE [Concomitant]

REACTIONS (3)
  - Gastrooesophageal reflux disease [Unknown]
  - Dysgeusia [Unknown]
  - Drug administration error [Unknown]
